FAERS Safety Report 5887836-5 (Version None)
Quarter: 2008Q3

REPORT INFORMATION
  Report Type: 
  Country: None (occurrence: None)
  Receive Date: 20080917
  Receipt Date: 20080917
  Transmission Date: 20090109
  Serious: Yes (Hospitalization)
  Sender: FDA-Public Use
  Company Number: None

PATIENT
  Age: 29 Year
  Sex: Male

DRUGS (2)
  1. PENICILLIN [Suspect]
     Dosage: 750 MG BID PO
     Route: 048
     Dates: start: 20071030, end: 20080620
  2. TACROLIMUS [Suspect]
     Dosage: 3 MG BID PO
     Route: 048
     Dates: start: 20080505

REACTIONS (1)
  - NEUTROPENIA [None]
